FAERS Safety Report 5056012-0 (Version None)
Quarter: 2006Q3

REPORT INFORMATION
  Report Type: 
  Country: None (occurrence: None)
  Receive Date: 20060720
  Receipt Date: 20060320
  Transmission Date: 20061208
  Serious: Yes (Other)
  Sender: FDA-Public Use
  Company Number: 2006UW04762

PATIENT
  Age: 20245 Day
  Sex: Male
  Weight: 90.5 kg

DRUGS (5)
  1. TOPROL-XL [Suspect]
     Indication: SUPRAVENTRICULAR TACHYCARDIA
     Route: 048
  2. TOPROL-XL [Suspect]
     Indication: HYPERTENSION
     Route: 048
  3. TOPAMAX [Suspect]
     Dates: start: 20050926
  4. LOTREL [Concomitant]
     Dosage: 5/10 MG
  5. GEMFIBROZIL [Concomitant]
     Route: 048

REACTIONS (7)
  - BLOOD PRESSURE INCREASED [None]
  - DRUG DISPENSING ERROR [None]
  - HEART RATE INCREASED [None]
  - MALAISE [None]
  - MEDICATION ERROR [None]
  - PALPITATIONS [None]
  - SUPRAVENTRICULAR TACHYCARDIA [None]
